FAERS Safety Report 24259598 (Version 2)
Quarter: 2024Q4

REPORT INFORMATION
  Report Type: Spontaneous
  Country: JP (occurrence: JP)
  Receive Date: 20240828
  Receipt Date: 20241007
  Transmission Date: 20250115
  Serious: Yes (Death, Life-Threatening, Hospitalization, Other)
  Sender: ALEXION PHARMACEUTICALS
  Company Number: 2024A192473

PATIENT
  Age: 7 Decade

DRUGS (16)
  1. FASLODEX [Suspect]
     Active Substance: FULVESTRANT
     Indication: Breast cancer
     Dosage: DOSE UNKNOWN
  2. FASLODEX [Suspect]
     Active Substance: FULVESTRANT
     Dosage: DOSE UNKNOWN
  3. FASLODEX [Suspect]
     Active Substance: FULVESTRANT
     Dosage: DOSE UNKNOWN
  4. FASLODEX [Suspect]
     Active Substance: FULVESTRANT
     Dosage: DOSE UNKNOWN
  5. FASLODEX [Suspect]
     Active Substance: FULVESTRANT
     Dosage: DOSE UNKNOWN
  6. FASLODEX [Suspect]
     Active Substance: FULVESTRANT
     Dosage: DOSE UNKNOWN
  7. FASLODEX [Suspect]
     Active Substance: FULVESTRANT
     Dosage: DOSE UNKNOWN
  8. FASLODEX [Suspect]
     Active Substance: FULVESTRANT
     Dosage: DOSE UNKNOWN
  9. FASLODEX [Suspect]
     Active Substance: FULVESTRANT
     Dosage: DOSE UNKNOWN
  10. FASLODEX [Suspect]
     Active Substance: FULVESTRANT
     Dosage: DOSE UNKNOWN
  11. FASLODEX [Suspect]
     Active Substance: FULVESTRANT
     Dosage: DOSE UNKNOWN
  12. FASLODEX [Suspect]
     Active Substance: FULVESTRANT
     Dosage: DOSE UNKNOWN
  13. TRUQAP [Suspect]
     Active Substance: CAPIVASERTIB
     Dosage: NUMBER OF SEPARATE DOSAGES UNKNOWN, 4 DAYS IN A ROW, FOLLOWED BY 3 DAYS OFF
  14. TRUQAP [Suspect]
     Active Substance: CAPIVASERTIB
     Dosage: NUMBER OF SEPARATE DOSAGES UNKNOWN, 4 DAYS IN A ROW, FOLLOWED BY 3 DAYS OFF
  15. TRUQAP [Suspect]
     Active Substance: CAPIVASERTIB
     Dosage: NUMBER OF SEPARATE DOSAGES UNKNOWN, 4 DAYS IN A ROW, FOLLOWED BY 3 DAYS OFF
  16. TRUQAP [Suspect]
     Active Substance: CAPIVASERTIB
     Dosage: NUMBER OF SEPARATE DOSAGES UNKNOWN, 4 DAYS IN A ROW, FOLLOWED BY 3 DAYS OFF

REACTIONS (4)
  - Hyperglycaemia [Recovering/Resolving]
  - Respiratory disorder [Fatal]
  - General physical health deterioration [Fatal]
  - Ketoacidosis [Recovering/Resolving]
